FAERS Safety Report 10271263 (Version 1)
Quarter: 2014Q3

REPORT INFORMATION
  Report Type: Spontaneous
  Country: US (occurrence: US)
  Receive Date: 20140701
  Receipt Date: 20140701
  Transmission Date: 20150326
  Serious: No
  Sender: FDA-Public Use
  Company Number: US-PFIZER INC-2014180389

PATIENT
  Age: 59 Year
  Sex: Female
  Weight: 80.27 kg

DRUGS (2)
  1. OXAPROZIN. [Suspect]
     Active Substance: OXAPROZIN
     Indication: PAIN
     Dosage: 600 MG, 3X/DAY
     Route: 048
     Dates: start: 20140512, end: 20140522
  2. OXAPROZIN. [Suspect]
     Active Substance: OXAPROZIN
     Indication: INFLAMMATION

REACTIONS (3)
  - Gastrooesophageal reflux disease [Unknown]
  - Malaise [Unknown]
  - Dizziness [Unknown]

NARRATIVE: CASE EVENT DATE: 201405
